FAERS Safety Report 6958027-1 (Version None)
Quarter: 2010Q3

REPORT INFORMATION
  Report Type: 
  Country: None (occurrence: None)
  Receive Date: 20100831
  Receipt Date: 20100826
  Transmission Date: 20110219
  Serious: Yes (Hospitalization)
  Sender: FDA-Public Use
  Company Number: US-BRISTOL-MYERS SQUIBB COMPANY-15244411

PATIENT
  Age: 46 Year
  Sex: Female

DRUGS (10)
  1. REYATAZ [Suspect]
     Indication: HIV INFECTION
     Route: 048
     Dates: start: 20100609
  2. PRAVACHOL [Suspect]
  3. METFORMIN HCL [Suspect]
  4. LISINOPRIL [Suspect]
  5. LOPINAVIR/RITONAVIR [Suspect]
  6. TENOFOVIR [Suspect]
     Route: 048
  7. ZIDOVUDINE [Suspect]
  8. PRILOSEC [Suspect]
  9. LANTUS [Suspect]
     Dosage: 1 DOSAGE FORM=1 DAY
  10. NORVIR [Suspect]

REACTIONS (1)
  - RENAL FAILURE ACUTE [None]
